FAERS Safety Report 11596649 (Version 1)
Quarter: 2015Q4

REPORT INFORMATION
  Report Type: Spontaneous
  Country: US (occurrence: None)
  Receive Date: 20151005
  Receipt Date: 20151005
  Transmission Date: 20160304
  Serious: Yes (Other)
  Sender: FDA-Public Use
  Company Number: None

PATIENT
  Age: 70 Year
  Sex: Male
  Weight: 99.79 kg

DRUGS (3)
  1. CORDRAN [Suspect]
     Active Substance: FLURANDRENOLIDE
     Indication: PSORIASIS
     Dosage: ONE ROLL  ONCE DAILY APPLIED AS MEDICATED PATCH TO SKIN
     Dates: start: 20150902, end: 20150906
  2. LORATADINE. [Concomitant]
     Active Substance: LORATADINE
  3. LISINOPRIL. [Concomitant]
     Active Substance: LISINOPRIL

REACTIONS (3)
  - Peripheral swelling [None]
  - Arthralgia [None]
  - Inflammation [None]

NARRATIVE: CASE EVENT DATE: 20150906
